FAERS Safety Report 9160471 (Version 3)
Quarter: 2014Q1

REPORT INFORMATION
  Report Type: Report from Study
  Country: US (occurrence: US)
  Receive Date: 20130313
  Receipt Date: 20140203
  Transmission Date: 20141002
  Serious: Yes (Hospitalization, Other)
  Sender: FDA-Public Use
  Company Number: US-ACTELION-A-NJ2012-63642

PATIENT
  Age: 47 Year
  Sex: Female

DRUGS (13)
  1. VELETRI [Suspect]
     Indication: PULMONARY ARTERIAL HYPERTENSION
     Dosage: 28 NG/KG, PER MIN
     Route: 041
     Dates: start: 20100723
  2. TRACLEER [Suspect]
     Indication: PULMONARY ARTERIAL HYPERTENSION
     Dosage: 125 MG, BID
     Route: 048
     Dates: start: 20100428, end: 20121219
  3. ADCIRCA [Concomitant]
     Dosage: 40 MG, QD
  4. LASIX [Concomitant]
     Dosage: 40 MG, UNK
  5. IBUPROFEN [Concomitant]
     Dosage: 800 MG, Q6HRS, AS NEEDED
  6. SYNTHROID [Concomitant]
     Dosage: 100 UNK, UNK
  7. OMEPRAZOLE [Concomitant]
     Dosage: 20 MG, UNK
  8. POTASSIUM CHLORIDE [Concomitant]
     Dosage: 20 MEQ, BID
  9. CITRACAL + D [Concomitant]
     Dosage: 1 UNK, UNK
  10. OSCAL [Concomitant]
     Dosage: 1250 MG, UNK
  11. VITAMIN B12 [Concomitant]
     Dosage: 1 UNK, UNK
  12. FOLIC ACID [Concomitant]
     Dosage: 1 MG, UNK
  13. REVLIMID [Suspect]
     Dosage: 5 MG, UNK

REACTIONS (17)
  - Cholecystectomy [Unknown]
  - Abdominal pain upper [Unknown]
  - Leukocytosis [Unknown]
  - Myelofibrosis [Not Recovered/Not Resolved]
  - Megakaryocytes increased [Not Recovered/Not Resolved]
  - Fatigue [Not Recovered/Not Resolved]
  - Splenomegaly [Not Recovered/Not Resolved]
  - Thrombocytopenia [Not Recovered/Not Resolved]
  - Anaemia [Not Recovered/Not Resolved]
  - Haemoglobin decreased [Not Recovered/Not Resolved]
  - Transfusion [Recovering/Resolving]
  - Blood iron decreased [Recovering/Resolving]
  - Vitamin B12 decreased [Recovering/Resolving]
  - Blood folate decreased [Recovering/Resolving]
  - Renal cyst [Unknown]
  - Intraductal papillary mucinous neoplasm [Unknown]
  - Pancreatic cyst [Unknown]
